FAERS Safety Report 18095807 (Version 3)
Quarter: 2020Q4

REPORT INFORMATION
  Report Type: Spontaneous
  Country: US (occurrence: US)
  Receive Date: 20200731
  Receipt Date: 20201230
  Transmission Date: 20210113
  Serious: No
  Sender: FDA-Public Use
  Company Number: US-GILEAD-2020-0487236

PATIENT
  Sex: Male

DRUGS (4)
  1. BIKTARVY [Concomitant]
     Active Substance: BICTEGRAVIR SODIUM\EMTRICITABINE\TENOFOVIR ALAFENAMIDE FUMARATE
     Indication: HIV INFECTION
  2. TRUVADA [Suspect]
     Active Substance: EMTRICITABINE\TENOFOVIR DISOPROXIL FUMARATE
     Indication: HIV INFECTION
     Dosage: UNK
     Route: 048
     Dates: start: 2014, end: 2015
  3. TRUVADA [Suspect]
     Active Substance: EMTRICITABINE\TENOFOVIR DISOPROXIL FUMARATE
     Dosage: UNK
     Route: 048
     Dates: start: 20140204, end: 20180303
  4. DESCOVY [Concomitant]
     Active Substance: EMTRICITABINE\TENOFOVIR ALAFENAMIDE FUMARATE
     Indication: HIV INFECTION

REACTIONS (5)
  - Renal impairment [Not Recovered/Not Resolved]
  - Renal impairment [Not Recovered/Not Resolved]
  - Blood creatinine increased [Not Recovered/Not Resolved]
  - Infection [Not Recovered/Not Resolved]
  - Nephropathy [Not Recovered/Not Resolved]

NARRATIVE: CASE EVENT DATE: 2014
